FAERS Safety Report 7958849-4 (Version None)
Quarter: 2011Q4

REPORT INFORMATION
  Report Type: 
  Country: None (occurrence: None)
  Receive Date: 20111206
  Receipt Date: 20111128
  Transmission Date: 20120403
  Serious: Yes (Other)
  Sender: FDA-Public Use
  Company Number: GR-UCBSA-045866

PATIENT
  Sex: Male

DRUGS (5)
  1. PHENYTOIN SODIUM [Suspect]
     Dates: start: 20111101, end: 20111101
  2. KEPPRA [Suspect]
     Indication: EPILEPSY
  3. PHENYTOIN SODIUM [Suspect]
  4. VIMPAT [Suspect]
     Indication: STATUS EPILEPTICUS
     Dates: start: 20111110
  5. DEPAKENE [Suspect]
     Dates: end: 20111101

REACTIONS (3)
  - PANCREATIC CARCINOMA METASTATIC [None]
  - CONVULSION [None]
  - STATUS EPILEPTICUS [None]
